FAERS Safety Report 4309013-1 (Version None)
Quarter: 2004Q1

REPORT INFORMATION
  Report Type: 
  Country: None (occurrence: None)
  Receive Date: 20040301
  Receipt Date: 20040226
  Transmission Date: 20041129
  Serious: No
  Sender: FDA-Public Use
  Company Number: 7497

PATIENT
  Age: 76 Year
  Sex: Male

DRUGS (8)
  1. AMIODARONE HCL [Suspect]
     Indication: ARRHYTHMIA
     Dosage: 200 MG FREQ UNK
     Dates: start: 20030201
  2. ATORVASTATIN [Concomitant]
  3. BISOPROLOL [Concomitant]
  4. FUROSEMIDE [Concomitant]
  5. RAMIPRIL [Concomitant]
  6. SULFASALAZINE [Concomitant]
  7. WARFARIN SODIUM [Concomitant]
  8. SPIRONOLACTONE [Concomitant]

REACTIONS (1)
  - HYPOTHYROIDISM [None]
